FAERS Safety Report 23468075 (Version 1)
Quarter: 2024Q1

REPORT INFORMATION
  Report Type: Report from Study
  Country: US (occurrence: US)
  Receive Date: 20240201
  Receipt Date: 20240201
  Transmission Date: 20240410
  Serious: Yes (Hospitalization, Other)
  Sender: FDA-Public Use
  Company Number: US-ABBVIE-5576769

PATIENT
  Sex: Female

DRUGS (3)
  1. HUMIRA [Suspect]
     Active Substance: ADALIMUMAB
     Indication: Crohn^s disease
     Route: 058
     Dates: start: 20180406, end: 20231213
  2. HUMIRA [Suspect]
     Active Substance: ADALIMUMAB
     Route: 058
     Dates: start: 20180405, end: 20180405
  3. HUMIRA [Suspect]
     Active Substance: ADALIMUMAB
     Route: 058
     Dates: start: 20240122

REACTIONS (8)
  - Illness [Recovered/Resolved]
  - Nephrolithiasis [Recovering/Resolving]
  - Dehydration [Recovering/Resolving]
  - Blood urine present [Not Recovered/Not Resolved]
  - Escherichia infection [Recovering/Resolving]
  - Bladder pain [Not Recovered/Not Resolved]
  - Laboratory test abnormal [Recovering/Resolving]
  - Pyuria [Not Recovered/Not Resolved]

NARRATIVE: CASE EVENT DATE: 20230101
